FAERS Safety Report 8624404-6 (Version None)
Quarter: 2012Q3

REPORT INFORMATION
  Report Type: 
  Country: None (occurrence: None)
  Receive Date: 20120827
  Receipt Date: 20120815
  Transmission Date: 20120928
  Serious: Yes (Other)
  Sender: FDA-Public Use
  Company Number: PHEH2012US015800

PATIENT
  Sex: Female

DRUGS (8)
  1. ADALAT [Suspect]
  2. DIOVAN HCT [Suspect]
     Dosage: 160 MG VALS AND 12.5 MG HCT
  3. NEURONTIN [Concomitant]
     Dosage: 3 DF (100 MG), QD
  4. METFORMIN HCL [Concomitant]
     Dosage: 2 DF (1000 MG), QD
  5. TOPROL-XL [Concomitant]
     Dosage: 1 DF (100 MG), QD
  6. AMARYL [Concomitant]
     Dosage: 1 DF (4 MG), QD
  7. LIPITOR [Concomitant]
     Dosage: 1 DF (40 MG), QD
  8. AMBIEN [Concomitant]
     Dosage: 1 DF (10 MG), QD

REACTIONS (2)
  - INCORRECT DOSE ADMINISTERED [None]
  - DIABETES MELLITUS [None]
